FAERS Safety Report 18936978 (Version 2)
Quarter: 2023Q2

REPORT INFORMATION
  Report Type: Spontaneous
  Country: US (occurrence: US)
  Receive Date: 20210224
  Receipt Date: 20230630
  Transmission Date: 20230722
  Serious: Yes (Death, Disabling)
  Sender: FDA-Public Use
  Company Number: US-TEVA-2021-US-1880022

PATIENT
  Sex: Male

DRUGS (10)
  1. HYDROCHLOROTHIAZIDE\LOSARTAN POTASSIUM [Suspect]
     Active Substance: HYDROCHLOROTHIAZIDE\LOSARTAN POTASSIUM
     Indication: Hypertension
     Dosage: 50-12.5 MG
     Route: 065
     Dates: start: 20150311, end: 20150410
  2. HYDROCHLOROTHIAZIDE\LOSARTAN POTASSIUM [Suspect]
     Active Substance: HYDROCHLOROTHIAZIDE\LOSARTAN POTASSIUM
     Dosage: 100-12.5 MG
     Route: 065
     Dates: start: 20150516, end: 20150615
  3. HYDROCHLOROTHIAZIDE\LOSARTAN POTASSIUM [Suspect]
     Active Substance: HYDROCHLOROTHIAZIDE\LOSARTAN POTASSIUM
     Indication: Hypertension
     Dosage: 100-12.5 MG
     Route: 065
     Dates: start: 20150318, end: 20150417
  4. HYDROCHLOROTHIAZIDE\LOSARTAN POTASSIUM [Suspect]
     Active Substance: HYDROCHLOROTHIAZIDE\LOSARTAN POTASSIUM
     Indication: Hypertension
     Dosage: 100-12.5 MG
     Route: 065
     Dates: start: 20150418, end: 20150518
  5. HYDROCHLOROTHIAZIDE\LOSARTAN POTASSIUM [Suspect]
     Active Substance: HYDROCHLOROTHIAZIDE\LOSARTAN POTASSIUM
     Indication: Hypertension
     Dosage: 100-12.5 MG
     Route: 065
     Dates: start: 20150611, end: 20151219
  6. LOSARTAN [Suspect]
     Active Substance: LOSARTAN
     Indication: Hypertension
     Dosage: 100 MG
     Route: 065
     Dates: start: 20151215, end: 20161221
  7. LOSARTAN [Suspect]
     Active Substance: LOSARTAN
     Indication: Hypertension
     Dosage: 100 MG
     Route: 065
     Dates: start: 20170409, end: 20170708
  8. LOSARTAN [Suspect]
     Active Substance: LOSARTAN
     Dosage: 100 MG
     Route: 065
     Dates: start: 20171204, end: 20180710
  9. LOSARTAN [Suspect]
     Active Substance: LOSARTAN
     Indication: Hypertension
     Dosage: 100 MG
     Route: 065
     Dates: start: 20161223, end: 20170323
  10. LOSARTAN [Suspect]
     Active Substance: LOSARTAN
     Indication: Hypertension
     Dosage: 100 MG
     Route: 065
     Dates: start: 20180708, end: 20181230

REACTIONS (1)
  - Myelodysplastic syndrome [Fatal]
